FAERS Safety Report 8054930-2 (Version None)
Quarter: 2012Q1

REPORT INFORMATION
  Report Type: 
  Country: None (occurrence: None)
  Receive Date: 20120119
  Receipt Date: 20120112
  Transmission Date: 20120608
  Serious: Yes (Death, Other)
  Sender: FDA-Public Use
  Company Number: JP-CELGENEUS-087-CCAZA-11092705

PATIENT
  Sex: Female

DRUGS (31)
  1. AMIKACIN SULFATE [Concomitant]
     Dosage: 400 MILLIGRAM
     Route: 041
     Dates: start: 20110604, end: 20110613
  2. OMEPRAZOLE [Concomitant]
     Dosage: 20 MILLIGRAM
     Route: 041
     Dates: start: 20110626, end: 20110626
  3. LEUKOPROL [Concomitant]
     Dosage: 8000000 IU (INTERNATIONAL UNIT)
     Route: 041
     Dates: start: 20110620, end: 20110624
  4. AMLODIPINE BESYLATE [Concomitant]
     Dosage: 5 MILLIGRAM
     Route: 048
     Dates: end: 20110626
  5. CLARITHROMYCIN [Concomitant]
     Dosage: 400 MILLIGRAM
     Route: 048
     Dates: end: 20110626
  6. ALLOPURINOL [Concomitant]
     Dosage: 100 MILLIGRAM
     Route: 048
     Dates: end: 20110626
  7. STOMARCON [Concomitant]
     Dosage: 20 MILLIGRAM
     Route: 048
  8. SCOPOLAMINE [Concomitant]
     Dosage: 20 MILLIGRAM
     Route: 041
     Dates: start: 20110626, end: 20110626
  9. GRANISETRON HCL [Concomitant]
     Dosage: 3 MILLIGRAM
     Route: 041
     Dates: start: 20110506, end: 20110512
  10. METHYCOBAL [Concomitant]
     Dosage: 1500 MILLIGRAM
     Route: 048
     Dates: end: 20110624
  11. BAKTAR [Concomitant]
     Dosage: 1 DOSAGE FORMS
     Route: 065
     Dates: end: 20110626
  12. VANCOMYCIN HYDROCHLORIDE [Concomitant]
     Dosage: 1 GRAM
     Route: 041
     Dates: start: 20110627, end: 20110627
  13. SODIUM BICARBONATE [Concomitant]
     Dosage: 250 MILLILITER
     Route: 041
     Dates: start: 20110624, end: 20110624
  14. VIDAZA [Suspect]
     Dosage: 75 MILLIGRAM/SQ. METER
     Route: 058
     Dates: start: 20110506, end: 20110512
  15. GRANISETRON HCL [Concomitant]
     Dosage: 3 MILLIGRAM
     Route: 041
     Dates: start: 20110407, end: 20110413
  16. DIOVAN [Concomitant]
     Dosage: 80 MILLIGRAM
     Route: 048
     Dates: end: 20110626
  17. MOTILIUM [Concomitant]
     Dosage: 30 MILLIGRAM
     Route: 065
  18. SANDOGLOBULIN [Concomitant]
     Dosage: 1 GRAM
     Route: 041
     Dates: start: 20110604, end: 20110606
  19. METHYLPREDNISOLONE SODIUM SUCCINATE [Concomitant]
     Dosage: 125 MILLIGRAM
     Route: 065
     Dates: start: 20110624, end: 20110627
  20. ELNEOPA NO. 2 [Concomitant]
     Dosage: 100 MILLILITER
     Route: 041
     Dates: start: 20110619, end: 20110627
  21. VIDAZA [Suspect]
     Dosage: 33 MILLIGRAM
     Route: 058
     Dates: start: 20110620, end: 20110624
  22. GRANISETRON HCL [Concomitant]
     Dosage: 3 MILLIGRAM
     Route: 041
     Dates: start: 20110620, end: 20110624
  23. LEVOTHYROXINE SODIUM [Concomitant]
     Dosage: 150 MILLIGRAM
     Route: 048
     Dates: end: 20110626
  24. EXJADE [Concomitant]
     Dosage: 20 GRAM
     Route: 048
     Dates: end: 20110624
  25. MEROPENEM [Concomitant]
     Dosage: .5 GRAM
     Route: 048
     Dates: start: 20110603, end: 20110616
  26. VIDAZA [Suspect]
     Route: 058
     Dates: start: 20110407, end: 20110413
  27. DESFERAL [Concomitant]
     Dosage: 500 MILLIGRAM
     Route: 041
     Dates: end: 20110624
  28. ITRACONAZOLE [Concomitant]
     Dosage: 100 MILLIGRAM
     Route: 048
     Dates: start: 20110325, end: 20110626
  29. LIPIDIL [Concomitant]
     Dosage: 100 MILLIGRAM
     Route: 048
     Dates: end: 20110624
  30. LEVOFLOXACIN [Concomitant]
     Dosage: 500 MILLIGRAM
     Route: 048
     Dates: end: 20110626
  31. OXATOMIDE [Concomitant]
     Dosage: 30 MILLIGRAM
     Route: 048

REACTIONS (3)
  - SKIN INDURATION [None]
  - GENITAL HAEMORRHAGE [None]
  - INFECTION [None]
